FAERS Safety Report 15383761 (Version 1)
Quarter: 2018Q3

REPORT INFORMATION
  Report Type: Spontaneous
  Country: US (occurrence: US)
  Receive Date: 20180913
  Receipt Date: 20180913
  Transmission Date: 20181010
  Serious: Yes (Hospitalization)
  Sender: FDA-Public Use
  Company Number: US-ASTRAZENECA-2018SF13036

PATIENT
  Age: 80 Year
  Sex: Female

DRUGS (1)
  1. SEROQUEL [Suspect]
     Active Substance: QUETIAPINE FUMARATE
     Route: 048

REACTIONS (3)
  - Delirium [Not Recovered/Not Resolved]
  - Drug interaction [Unknown]
  - Psychotic symptom [Unknown]

NARRATIVE: CASE EVENT DATE: 2017
